FAERS Safety Report 7399527-2 (Version None)
Quarter: 2011Q2

REPORT INFORMATION
  Report Type: 
  Country: None (occurrence: None)
  Receive Date: 20110407
  Receipt Date: 20110328
  Transmission Date: 20111010
  Serious: Yes (Hospitalization)
  Sender: FDA-Public Use
  Company Number: US-ELI_LILLY_AND_COMPANY-US201104000601

PATIENT
  Sex: Female
  Weight: 40.816 kg

DRUGS (27)
  1. VITAMIN D [Concomitant]
     Dosage: UNK, MONTHLY (1/M)
  2. XOPENEX [Concomitant]
  3. SYNTHROID [Concomitant]
  4. CALTRATE                           /00108001/ [Concomitant]
  5. PROTONIX [Concomitant]
  6. ASPIRIN EXTRA [Concomitant]
     Dosage: UNK, PRN
  7. MECLIZINE [Concomitant]
  8. FORTEO [Suspect]
     Dosage: 20 UG, QD
  9. MIACALCIN [Concomitant]
  10. PLAVIX [Concomitant]
  11. XYZAL [Concomitant]
  12. AMIODARONE HCL [Concomitant]
  13. ADVAIR HFA [Concomitant]
  14. ARTIFICIAL TEARS [Concomitant]
  15. ASPIRIN [Concomitant]
  16. K-DUR [Concomitant]
  17. LASIX [Concomitant]
  18. COLACE [Concomitant]
  19. LISINOPRIL [Concomitant]
  20. NITRO-DUR [Concomitant]
  21. BACTRIM DS [Concomitant]
  22. FORTEO [Suspect]
     Indication: OSTEOPOROSIS
     Dosage: 20 UG, QD
     Dates: start: 20101001, end: 20101001
  23. FORTEO [Suspect]
     Dosage: 20 UG, QD
  24. MIRALAX [Concomitant]
  25. SINGULAIR [Concomitant]
  26. TOPROL-XL                          /00376903/ [Concomitant]
  27. PHENERGAN HCL [Concomitant]

REACTIONS (2)
  - CHEST PAIN [None]
  - HOSPITALISATION [None]
